FAERS Safety Report 5872387-4 (Version None)
Quarter: 2008Q3

REPORT INFORMATION
  Report Type: 
  Country: None (occurrence: None)
  Receive Date: 20080902
  Receipt Date: 20080819
  Transmission Date: 20090109
  Serious: Yes (Life-Threatening)
  Sender: FDA-Public Use
  Company Number: 2008S1015284

PATIENT
  Age: 47 Year
  Sex: Male

DRUGS (2)
  1. AZATHIOPRINE [Suspect]
     Indication: DRUG USE FOR UNKNOWN INDICATION
     Dosage: ORAL
     Route: 048
     Dates: start: 20060101
  2. CYCLOSPORINE [Suspect]
     Indication: NEURODERMATITIS
     Dosage: ORAL
     Route: 048
     Dates: start: 20030101

REACTIONS (1)
  - HODGKIN'S DISEASE [None]
